FAERS Safety Report 5268348-9 (Version None)
Quarter: 2007Q1

REPORT INFORMATION
  Report Type: 
  Country: None (occurrence: None)
  Receive Date: 20070315
  Receipt Date: 20070315
  Transmission Date: 20070707
  Serious: Yes (Death)
  Sender: FDA-Public Use
  Company Number: None

PATIENT
  Age: 78 Year
  Sex: Male
  Weight: 63.5036 kg

DRUGS (2)
  1. PROCRIT [Suspect]
     Indication: ANAEMIA
     Dosage: IM
     Route: 030
     Dates: start: 20060622, end: 20060720
  2. PROCRIT [Suspect]
     Indication: ANAEMIA
     Dosage: IM
     Route: 030
     Dates: start: 20060706, end: 20060801

REACTIONS (4)
  - COLLAPSE OF LUNG [None]
  - LIFE EXPECTANCY SHORTENED [None]
  - LYMPHADENOPATHY [None]
  - PNEUMONIA [None]
